FAERS Safety Report 23978480 (Version 3)
Quarter: 2024Q3

REPORT INFORMATION
  Report Type: Spontaneous
  Country: US (occurrence: US)
  Receive Date: 20240614
  Receipt Date: 20240827
  Transmission Date: 20241017
  Serious: Yes (Hospitalization)
  Sender: CALLIDITAS THERAPEUTICS
  Company Number: US-Calliditas-2024CAL00972

PATIENT
  Age: 72 Year
  Sex: Male
  Weight: 85.9 kg

DRUGS (13)
  1. TARPEYO [Suspect]
     Active Substance: BUDESONIDE
     Indication: IgA nephropathy
     Route: 048
     Dates: start: 20240214
  2. LASIX [Concomitant]
     Active Substance: FUROSEMIDE
  3. LISINOPRIL [Suspect]
     Active Substance: LISINOPRIL
     Indication: Product used for unknown indication
  4. AMLODIPINE [Concomitant]
     Active Substance: AMLODIPINE BESYLATE
  5. ATORVASTATIN [Concomitant]
     Active Substance: ATORVASTATIN
     Indication: Blood cholesterol
  6. CLONIDINE HYDROCHLORIDE [Concomitant]
     Active Substance: CLONIDINE HYDROCHLORIDE
     Dosage: TIME INTERVAL:
  7. JARDIANCE [Concomitant]
     Active Substance: EMPAGLIFLOZIN
  8. ENALAPRIL [Concomitant]
     Active Substance: ENALAPRIL
  9. HYDRALAZINE [Concomitant]
     Active Substance: HYDRALAZINE HYDROCHLORIDE
  10. METFORMIN [Concomitant]
     Active Substance: METFORMIN HYDROCHLORIDE
     Dosage: METFORMIN 500MG 24HR TABLET, 2 TABLETS BY MOUTH 2 (TWO) TIMES DAILY
  11. METOPROLOL SUCCINATE [Concomitant]
     Active Substance: METOPROLOL SUCCINATE
  12. TAMSULOSIN [Concomitant]
     Active Substance: TAMSULOSIN
  13. TRESIBA [Concomitant]
     Active Substance: INSULIN DEGLUDEC
     Dosage: 200 UNIT/ML (3ML) SUBCUTANEOUS PEN; INJECT 64 UNITS INTO THE SKIN DAILY

REACTIONS (7)
  - Anal incontinence [Unknown]
  - Asthenia [Unknown]
  - Fatigue [Unknown]
  - Mood altered [Unknown]
  - Hypokalaemia [Unknown]
  - Hypervolaemia [Unknown]
  - Oedema peripheral [Unknown]

NARRATIVE: CASE EVENT DATE: 20240601
